FAERS Safety Report 17473694 (Version 1)
Quarter: 2020Q1

REPORT INFORMATION
  Report Type: Spontaneous
  Country: US (occurrence: US)
  Receive Date: 20200228
  Receipt Date: 20200228
  Transmission Date: 20200409
  Serious: Yes (Other)
  Sender: FDA-Public Use
  Company Number: None

PATIENT
  Age: 25 Year
  Sex: Female

DRUGS (4)
  1. BUPRENORPHINE NALOXONE 8-2MG TABLETS [Concomitant]
     Active Substance: BUPRENORPHINE HYDROCHLORIDE\NALOXONE HYDROCHLORIDE
     Dates: start: 20190121, end: 20190310
  2. BUPRENORPHINE - NALOXONE FILMS [Concomitant]
     Active Substance: BUPRENORPHINE\NALOXONE
     Dates: start: 20190311, end: 20200228
  3. BUPRENORPHINE NALOXONE 8-2MG TABLETS [Suspect]
     Active Substance: BUPRENORPHINE HYDROCHLORIDE\NALOXONE HYDROCHLORIDE
     Indication: DRUG DEPENDENCE
     Route: 048
     Dates: start: 20190228, end: 20200228
  4. SUBOXONE [Suspect]
     Active Substance: BUPRENORPHINE HYDROCHLORIDE\NALOXONE HYDROCHLORIDE

REACTIONS (3)
  - Drug ineffective [None]
  - Drug dependence [None]
  - Therapy change [None]

NARRATIVE: CASE EVENT DATE: 20200228
